FAERS Safety Report 24145492 (Version 1)
Quarter: 2024Q3

REPORT INFORMATION
  Report Type: Spontaneous
  Country: US (occurrence: US)
  Receive Date: 20240729
  Receipt Date: 20240729
  Transmission Date: 20241016
  Serious: No
  Sender: AMARIN
  Company Number: US-Amarin Pharma  Inc-2024AMR000351

PATIENT
  Age: 66 Year
  Sex: Female

DRUGS (3)
  1. VASCEPA [Suspect]
     Active Substance: ICOSAPENT ETHYL
     Indication: Blood triglycerides increased
     Dates: start: 202404, end: 202407
  2. SULFASALAZINE [Concomitant]
     Active Substance: SULFASALAZINE
     Indication: Colitis
     Dosage: UNKNOWN
  3. SULFASALAZINE [Concomitant]
     Active Substance: SULFASALAZINE
     Dosage: DOSE DECREASED

REACTIONS (3)
  - Diarrhoea [Unknown]
  - Defaecation urgency [Unknown]
  - Therapeutic response unexpected [Unknown]

NARRATIVE: CASE EVENT DATE: 20240101
